FAERS Safety Report 7626427-2 (Version None)
Quarter: 2011Q3

REPORT INFORMATION
  Report Type: 
  Country: None (occurrence: None)
  Receive Date: 20110721
  Receipt Date: 20110708
  Transmission Date: 20111222
  Serious: Yes (Death, Other)
  Sender: FDA-Public Use
  Company Number: DE-ROCHE-726855

PATIENT
  Sex: Male
  Weight: 75 kg

DRUGS (3)
  1. OXALIPLATIN [Suspect]
     Indication: GASTRIC CANCER
     Dosage: THE 2ND CYCLE STARTED ON 13-AUG-2010
     Route: 042
  2. EPIRUBICIN [Suspect]
     Indication: GASTRIC CANCER
     Dosage: THE 2ND CYCLE STARTED ON 13-AUG-2010
     Route: 042
  3. CAPECITABINE [Suspect]
     Indication: GASTRIC CANCER
     Dosage: THE 2ND CYCLE STARTED ON 13-AUG-2010
     Route: 048

REACTIONS (2)
  - OROPHARYNGEAL SWELLING [None]
  - NEOPLASM PROGRESSION [None]
